FAERS Safety Report 16043331 (Version 2)
Quarter: 2019Q1

REPORT INFORMATION
  Report Type: Report from Study
  Country: US (occurrence: US)
  Receive Date: 20190306
  Receipt Date: 20190308
  Transmission Date: 20190418
  Serious: Yes (Disabling)
  Sender: FDA-Public Use
  Company Number: US-SA-2019SA058291

PATIENT
  Age: 50 Year
  Sex: Female

DRUGS (2)
  1. INSULIN LISPRO [Suspect]
     Active Substance: INSULIN LISPRO
     Indication: TYPE 1 DIABETES MELLITUS
     Dosage: UNK UNK, UNK
     Route: 065
  2. INSULIN GLARGINE [Suspect]
     Active Substance: INSULIN GLARGINE
     Indication: TYPE 1 DIABETES MELLITUS
     Dosage: 15 U, BID
     Route: 058

REACTIONS (6)
  - Eye disorder [Not Recovered/Not Resolved]
  - Depression [Not Recovered/Not Resolved]
  - Sciatica [Recovering/Resolving]
  - Inappropriate schedule of product administration [Unknown]
  - Anxiety disorder [Not Recovered/Not Resolved]
  - Neuropathy peripheral [Recovering/Resolving]
